FAERS Safety Report 4821964-8 (Version None)
Quarter: 2005Q4

REPORT INFORMATION
  Report Type: 
  Country: None (occurrence: None)
  Receive Date: 20051103
  Receipt Date: 20051024
  Transmission Date: 20060501
  Serious: Yes (Other)
  Sender: FDA-Public Use
  Company Number: 2005147166

PATIENT
  Sex: Female
  Weight: 60 kg

DRUGS (1)
  1. DOSTINEX [Suspect]
     Indication: PROLACTINOMA
     Dosage: 0.5 MG (0.5 MG, DAILY), ORAL
     Route: 048
     Dates: start: 19920301

REACTIONS (1)
  - CEREBRAL HAEMORRHAGE [None]
